FAERS Safety Report 19980599 (Version 1)
Quarter: 2021Q4

REPORT INFORMATION
  Report Type: Spontaneous
  Country: PH (occurrence: PH)
  Receive Date: 20211021
  Receipt Date: 20211021
  Transmission Date: 20220304
  Serious: Yes (Death, Other)
  Sender: FDA-Public Use
  Company Number: PH-PFIZER INC-202101401332

PATIENT
  Age: 25 Year
  Sex: Female

DRUGS (9)
  1. VANCOMYCIN HYDROCHLORIDE [Suspect]
     Active Substance: VANCOMYCIN HYDROCHLORIDE
     Indication: COVID-19
     Dosage: UNK
  2. MEROPENEM [Suspect]
     Active Substance: MEROPENEM
     Indication: COVID-19
     Dosage: UNK
  3. LOPINAVIR\RITONAVIR [Suspect]
     Active Substance: LOPINAVIR\RITONAVIR
     Indication: COVID-19
     Dosage: UNK
  4. POLYMYXIN [Suspect]
     Active Substance: POLYMYXIN
     Indication: COVID-19
     Dosage: UNK
  5. ALBUTEROL\IPRATROPIUM BROMIDE [Suspect]
     Active Substance: ALBUTEROL\IPRATROPIUM BROMIDE
     Indication: COVID-19
     Dosage: UNK
  6. TINZAPARIN [Suspect]
     Active Substance: TINZAPARIN
     Indication: COVID-19
     Dosage: UNK
  7. PYRIDOSTIGMINE [Concomitant]
     Active Substance: PYRIDOSTIGMINE
     Indication: Myasthenia gravis
     Dosage: UNK
  8. PREDNISONE [Concomitant]
     Active Substance: PREDNISONE
     Indication: Myasthenia gravis
     Dosage: UNK
  9. IMMUNE GLOBULIN NOS [Concomitant]
     Active Substance: IMMUNE GLOBULIN NOS
     Indication: Myasthenia gravis
     Dosage: UNK

REACTIONS (3)
  - Off label use [Fatal]
  - Drug ineffective for unapproved indication [Fatal]
  - Foetal death [Unknown]
